FAERS Safety Report 25976365 (Version 1)
Quarter: 2025Q4

REPORT INFORMATION
  Report Type: Spontaneous
  Country: US (occurrence: None)
  Receive Date: 20251023
  Receipt Date: 20251023
  Transmission Date: 20260117
  Serious: Yes (Hospitalization)
  Sender: FDA-CTU
  Company Number: None

PATIENT
  Age: 42 Year
  Sex: Female
  Weight: 78.3 kg

DRUGS (6)
  1. OXALIPLATIN [Suspect]
     Active Substance: OXALIPLATIN
     Indication: Pancreatic carcinoma
     Dosage: 150 MG INTRAVENOUS
     Route: 042
     Dates: start: 20251021
  2. IRINOTECAN [Concomitant]
     Active Substance: IRINOTECAN
     Dates: start: 20251021
  3. LEUCOVORIN [Concomitant]
     Active Substance: LEUCOVORIN\LEUCOVORIN CALCIUM
     Dates: start: 20251021
  4. APREPITANT [Concomitant]
     Active Substance: APREPITANT
     Dates: start: 20251021
  5. ATROPINE [Concomitant]
     Active Substance: ATROPINE
     Dates: start: 20251021
  6. DEXAMETHASONE [Concomitant]
     Active Substance: DEXAMETHASONE
     Dates: start: 20251021

REACTIONS (5)
  - Infusion related reaction [None]
  - Dysarthria [None]
  - Visual impairment [None]
  - Paraesthesia [None]
  - Muscle spasms [None]

NARRATIVE: CASE EVENT DATE: 20251021
